FAERS Safety Report 13020311 (Version 1)
Quarter: 2016Q4

REPORT INFORMATION
  Report Type: Spontaneous
  Country: DE (occurrence: DE)
  Receive Date: 20161212
  Receipt Date: 20161212
  Transmission Date: 20170207
  Serious: Yes (Other)
  Sender: FDA-Public Use
  Company Number: DE-TEVA-716204GER

PATIENT
  Age: 34 Year
  Sex: Female
  Weight: 97 kg

DRUGS (5)
  1. ABILIFY [Suspect]
     Active Substance: ARIPIPRAZOLE
     Indication: PSYCHOTIC DISORDER
     Dosage: 5 MILLIGRAM DAILY;
     Route: 048
     Dates: start: 20151029, end: 20160729
  2. HYPNOREX [Concomitant]
     Active Substance: LITHIUM CARBONATE
     Indication: PSYCHOTIC DISORDER
     Dosage: 900 MILLIGRAM DAILY;
     Route: 048
     Dates: start: 20151029, end: 20160729
  3. L-THYROXIN [Concomitant]
     Active Substance: LEVOTHYROXINE SODIUM
     Indication: HYPOTHYROIDISM
     Dosage: 150 MICROGRAM DAILY;
     Route: 048
     Dates: start: 20151029, end: 20160729
  4. FOLIO FORTE [Concomitant]
     Active Substance: FOLIC ACID\VITAMINS
     Indication: PROPHYLAXIS OF NEURAL TUBE DEFECT
     Dosage: .8 MILLIGRAM DAILY;
     Route: 048
  5. CLOZAPIN [Suspect]
     Active Substance: CLOZAPINE
     Indication: PSYCHOTIC DISORDER
     Dosage: 100 MILLIGRAM DAILY;
     Route: 048
     Dates: start: 20151029, end: 20160729

REACTIONS (1)
  - Gestational diabetes [Recovered/Resolved]
